FAERS Safety Report 6860821-2 (Version None)
Quarter: 2010Q3

REPORT INFORMATION
  Report Type: 
  Country: None (occurrence: None)
  Receive Date: 20100720
  Receipt Date: 20100714
  Transmission Date: 20110219
  Serious: Yes (Hospitalization, Disabling, Other)
  Sender: FDA-Public Use
  Company Number: US-MERCK-1004USA00573

PATIENT
  Age: 66 Year
  Sex: Female

DRUGS (3)
  1. FOSAMAX [Suspect]
     Indication: BONE DENSITY DECREASED
     Route: 048
     Dates: start: 20041201, end: 20071201
  2. FOSAMAX [Suspect]
     Indication: OSTEOPOROSIS
     Route: 048
     Dates: start: 20041201, end: 20071201
  3. BONIVA [Concomitant]
     Indication: BONE DENSITY DECREASED
     Route: 048
     Dates: start: 20071201, end: 20090801

REACTIONS (14)
  - BONE DISORDER [None]
  - DENTAL CARIES [None]
  - DENTAL NECROSIS [None]
  - JAW DISORDER [None]
  - LUNG DISORDER [None]
  - ORAL INFECTION [None]
  - ORAL TORUS [None]
  - OSTEOMYELITIS [None]
  - OSTEONECROSIS OF JAW [None]
  - PUBIS FRACTURE [None]
  - SURGERY [None]
  - TOOTH DISORDER [None]
  - TOOTH LOSS [None]
  - TOOTHACHE [None]
